FAERS Safety Report 6967898-4 (Version None)
Quarter: 2010Q3

REPORT INFORMATION
  Report Type: 
  Country: None (occurrence: None)
  Receive Date: 20100907
  Receipt Date: 20100702
  Transmission Date: 20110219
  Serious: No
  Sender: FDA-Public Use
  Company Number: A0868404A

PATIENT
  Age: 74 Year
  Sex: Female

DRUGS (9)
  1. REQUIP [Suspect]
     Indication: RESTLESS LEGS SYNDROME
     Dosage: 2MG TWICE PER DAY
     Route: 048
     Dates: start: 20050101, end: 20100101
  2. REQUIP XL [Suspect]
     Dosage: 2MG TWICE PER DAY
     Route: 048
     Dates: start: 20100101
  3. KERLONE [Concomitant]
  4. DIOVAN [Concomitant]
  5. IMDUR [Concomitant]
  6. DIAZIDE [Concomitant]
  7. ASPIRIN [Concomitant]
  8. NEXIUM [Concomitant]
  9. ZETIA [Concomitant]

REACTIONS (4)
  - DISCOMFORT [None]
  - RESTLESS LEGS SYNDROME [None]
  - SOMNOLENCE [None]
  - TREMOR [None]
